FAERS Safety Report 22145927 (Version 1)
Quarter: 2023Q1

REPORT INFORMATION
  Report Type: Spontaneous
  Country: US (occurrence: None)
  Receive Date: 20230327
  Receipt Date: 20230327
  Transmission Date: 20230417
  Serious: Yes (Life-Threatening, Hospitalization, Disabling)
  Sender: FDA-Public Use
  Company Number: None

PATIENT
  Age: 59 Year
  Sex: Male
  Weight: 86.85 kg

DRUGS (1)
  1. BC (ASPIRIN\CAFFEINE) [Suspect]
     Active Substance: ASPIRIN\CAFFEINE

REACTIONS (3)
  - Acute myocardial infarction [None]
  - Chronic kidney disease [None]
  - Contraindicated product administered [None]

NARRATIVE: CASE EVENT DATE: 20230318
